FAERS Safety Report 21979402 (Version 2)
Quarter: 2023Q1

REPORT INFORMATION
  Report Type: Report from Study
  Country: KR (occurrence: KR)
  Receive Date: 20230210
  Receipt Date: 20230310
  Transmission Date: 20230417
  Serious: Yes (Hospitalization)
  Sender: FDA-Public Use
  Company Number: KR-ABBVIE-4300553

PATIENT
  Age: 59 Year
  Sex: Male
  Weight: 53 kg

DRUGS (11)
  1. VENETOCLAX [Suspect]
     Active Substance: VENETOCLAX
     Indication: Acute myeloid leukaemia
     Route: 048
     Dates: start: 20230117, end: 20230205
  2. AZACITIDINE [Suspect]
     Active Substance: AZACITIDINE
     Indication: Acute myeloid leukaemia
     Dosage: ON DAYS 1-5 OF EACH 28 DAY CYCLE
     Route: 058
     Dates: start: 20230117, end: 20230125
  3. Thrupas ODT [Concomitant]
     Indication: Benign prostatic hyperplasia
     Route: 048
     Dates: start: 20221206
  4. BETAMIGA PR [Concomitant]
     Indication: Benign prostatic hyperplasia
     Route: 048
     Dates: start: 20221206
  5. OMACOR [Concomitant]
     Active Substance: OMEGA-3-ACID ETHYL ESTERS
     Indication: Prophylaxis
     Dates: start: 20221206
  6. PRAVASTATIN SODIUM [Concomitant]
     Active Substance: PRAVASTATIN SODIUM
     Indication: Prophylaxis
     Route: 048
     Dates: start: 20221206
  7. FOLIC ACID [Concomitant]
     Active Substance: FOLIC ACID
     Indication: Vitamin supplementation
     Route: 048
     Dates: start: 20210712
  8. METHYLCOBALAMIN [Concomitant]
     Active Substance: METHYLCOBALAMIN
     Indication: Myelopathy
     Dosage: TIME INTERVAL: 0.33333333 DAYS
     Route: 048
     Dates: start: 20210712
  9. URSODIOL [Concomitant]
     Active Substance: URSODIOL
     Indication: Prophylaxis
     Route: 048
     Dates: start: 20221207
  10. PREVYMIS [Concomitant]
     Active Substance: LETERMOVIR
     Indication: Antiviral prophylaxis
     Route: 048
     Dates: start: 20221206
  11. SULFAMETHOXAZOLE\TRIMETHOPRIM [Concomitant]
     Active Substance: SULFAMETHOXAZOLE\TRIMETHOPRIM
     Indication: Antibiotic prophylaxis
     Route: 048
     Dates: start: 20230131

REACTIONS (1)
  - Diarrhoea [Not Recovered/Not Resolved]

NARRATIVE: CASE EVENT DATE: 20230206
